FAERS Safety Report 4441149-7 (Version None)
Quarter: 2004Q3

REPORT INFORMATION
  Report Type: 
  Country: None (occurrence: None)
  Receive Date: 20040728
  Receipt Date: 20040517
  Transmission Date: 20050211
  Serious: No
  Sender: FDA-Public Use
  Company Number: USA040567760

PATIENT
  Age: 37 Year
  Sex: Male

DRUGS (3)
  1. STRATTERA [Suspect]
     Indication: ATTENTION DEFICIT/HYPERACTIVITY DISORDER
     Dosage: 60 MG DAY
     Dates: start: 20040401
  2. WELLBUTRIN [Concomitant]
  3. PAXIL [Concomitant]

REACTIONS (3)
  - CHROMATURIA [None]
  - DEHYDRATION [None]
  - DRY MOUTH [None]
